FAERS Safety Report 18115686 (Version 3)
Quarter: 2025Q3

REPORT INFORMATION
  Report Type: Report from Study
  Country: EU (occurrence: EU)
  Receive Date: 20200805
  Receipt Date: 20250902
  Transmission Date: 20251021
  Serious: Yes (Other)
  Sender: MYLAN
  Company Number: EU-ROCHE-2647773

PATIENT
  Age: 53 Year
  Sex: Female
  Weight: 54 kg

DRUGS (26)
  1. DOCETAXEL [Suspect]
     Active Substance: DOCETAXEL
     Indication: HER2 positive breast cancer
     Dosage: 75 MILLIGRAM/SQ. METER, 3XW MOST RECENT DOSE PRIOR TO THE EVENT: 19/DEC/2018
     Dates: start: 20170804, end: 201711
  2. TRASTUZUMAB [Suspect]
     Active Substance: TRASTUZUMAB
     Indication: HER2 positive breast cancer
     Dosage: UNK UNK, QD (8 MILLIGRAM/KILOGRAM, QD)
     Dates: start: 20170804, end: 20170804
  3. XGEVA [Suspect]
     Active Substance: DENOSUMAB
     Indication: HER2 positive breast cancer
     Dosage: 120 MILLIGRAM, Q28D
     Dates: start: 20181219, end: 20200528
  4. PERTUZUMAB [Suspect]
     Active Substance: PERTUZUMAB
     Indication: HER2 positive breast cancer
     Dosage: 840 MILLIGRAM, QD
     Dates: start: 20170804, end: 20170804
  5. VINORELBINE [Suspect]
     Active Substance: VINORELBINE TARTRATE
     Indication: HER2 positive breast cancer
     Dosage: 25 MILLIGRAM/SQ. METER, 3XW
     Dates: start: 20200218
  6. ADO-TRASTUZUMAB EMTANSINE [Suspect]
     Active Substance: ADO-TRASTUZUMAB EMTANSINE
     Indication: HER2 positive breast cancer
     Dates: start: 20180830, end: 201811
  7. TYKERB [Suspect]
     Active Substance: LAPATINIB DITOSYLATE
     Indication: HER2 positive breast cancer
     Dosage: 1250 MILLIGRAM, QD
     Dates: start: 20191125, end: 20191125
  8. CAPECITABINE [Suspect]
     Active Substance: CAPECITABINE
     Indication: HER2 positive breast cancer
     Dosage: 2000 MILLIGRAM, Q3W
     Dates: start: 20190530, end: 20191125
  9. VINORELBINE TARTRATE [Suspect]
     Active Substance: VINORELBINE TARTRATE
     Indication: Product used for unknown indication
  10. HERCEPTIN [Suspect]
     Active Substance: TRASTUZUMAB
     Indication: HER2 positive breast cancer
     Dosage: 75 MILLIGRAM/SQ. METER, QW
     Dates: start: 20200218, end: 20201009
  11. PERJETA [Suspect]
     Active Substance: PERTUZUMAB
     Indication: HER2 positive breast cancer
     Dosage: 1800 MILLIGRAM, QW
     Dates: start: 20181219, end: 20191111
  12. PERJETA [Suspect]
     Active Substance: PERTUZUMAB
     Dosage: 1260 MILLIGRAM, QW
     Dates: start: 20190404, end: 20190624
  13. PERJETA [Suspect]
     Active Substance: PERTUZUMAB
     Dosage: 840 MILLIGRAM, QW
     Dates: start: 20170804, end: 20170804
  14. GOSERELIN [Suspect]
     Active Substance: GOSERELIN
     Indication: HER2 positive breast cancer
     Dosage: UNK UNK, Q3W (6 MILLILITRE PER KILOGRAM, Q3W)
     Dates: start: 20201208
  15. TAXOTERE [Suspect]
     Active Substance: DOCETAXEL
     Indication: HER2 positive breast cancer
     Dates: start: 20181219, end: 20190503
  16. TAXOTERE [Suspect]
     Active Substance: DOCETAXEL
     Dosage: 225 MILLIGRAM/SQ. METER, QW
     Dates: start: 20170804, end: 201711
  17. TAXOTERE [Suspect]
     Active Substance: DOCETAXEL
     Dosage: 225 MILLIGRAM/SQ. METER, QW
     Dates: start: 20170804, end: 201711
  18. NOLVADEX [Suspect]
     Active Substance: TAMOXIFEN CITRATE
     Indication: HER2 positive breast cancer
  19. KADCYLA [Suspect]
     Active Substance: ADO-TRASTUZUMAB EMTANSINE
     Indication: HER2 positive breast cancer
     Dosage: 24 MILLIGRAM/SQ. METER, QW
     Dates: start: 20170804, end: 20170804
  20. LAPATINIB [Suspect]
     Active Substance: LAPATINIB
     Indication: HER2 positive breast cancer
     Dosage: 1250 MILLIGRAM, QD
     Dates: start: 20191125, end: 20191125
  21. VANCOMYCIN [Concomitant]
     Active Substance: VANCOMYCIN
     Indication: Product used for unknown indication
  22. FENTANYL CITRATE [Concomitant]
     Active Substance: FENTANYL CITRATE
     Indication: Product used for unknown indication
  23. RINGERS SOLUTION [Concomitant]
     Active Substance: CALCIUM CHLORIDE\POTASSIUM CHLORIDE\SODIUM CHLORIDE
     Indication: Product used for unknown indication
     Dosage: 840 MILLIGRAM, QD
     Dates: start: 20170804, end: 20170804
  24. GENTAMICIN [Concomitant]
     Active Substance: GENTAMICIN
     Dosage: 420 MILLIGRAM, Q3W
     Dates: start: 20170824, end: 20180808
  25. MORPHINE [Concomitant]
     Active Substance: MORPHINE
     Indication: Product used for unknown indication
     Dosage: 200 MILLIGRAM, Q3W
     Dates: start: 20180830, end: 201811
  26. METRONIDAZOLE [Concomitant]
     Active Substance: METRONIDAZOLE
     Indication: Product used for unknown indication
     Dates: start: 20200421, end: 20200508

REACTIONS (5)
  - Metastases to spine [Recovered/Resolved]
  - Compression fracture [Recovered/Resolved]
  - Paraparesis [Recovered/Resolved]
  - Gastrointestinal bacterial infection [Recovered/Resolved]
  - Pelvic pain [Not Recovered/Not Resolved]

NARRATIVE: CASE EVENT DATE: 20191201
